FAERS Safety Report 23121932 (Version 1)
Quarter: 2023Q4

REPORT INFORMATION
  Report Type: Spontaneous
  Country: US (occurrence: US)
  Receive Date: 20231030
  Receipt Date: 20231030
  Transmission Date: 20240109
  Serious: Yes (Other)
  Sender: FDA-Public Use
  Company Number: US-BEH-2023164581

PATIENT
  Age: 70 Year
  Sex: Female
  Weight: 78.912 kg

DRUGS (8)
  1. PRIVIGEN [Suspect]
     Active Substance: HUMAN IMMUNOGLOBULIN G
     Indication: Immunodeficiency common variable
     Dosage: UNK, QMT
     Route: 042
     Dates: start: 2018
  2. NORVASC [Concomitant]
     Active Substance: AMLODIPINE BESYLATE
  3. ZETIA [Concomitant]
     Active Substance: EZETIMIBE
  4. PRAVASTATIN [Concomitant]
     Active Substance: PRAVASTATIN
  5. MINOXIDIL [Concomitant]
     Active Substance: MINOXIDIL
  6. CALCIUM CITRATE [Concomitant]
     Active Substance: CALCIUM CITRATE
  7. SYNTHROID [Concomitant]
     Active Substance: LEVOTHYROXINE SODIUM
  8. POTASSIUM [Concomitant]
     Active Substance: POTASSIUM

REACTIONS (3)
  - Hepatitis [Not Recovered/Not Resolved]
  - Suspected transmission of an infectious agent via product [Not Recovered/Not Resolved]
  - Feeling abnormal [Not Recovered/Not Resolved]

NARRATIVE: CASE EVENT DATE: 20230601
